FAERS Safety Report 4423624-4 (Version None)
Quarter: 2004Q3

REPORT INFORMATION
  Report Type: 
  Country: None (occurrence: None)
  Receive Date: 20040805
  Receipt Date: 20040723
  Transmission Date: 20050211
  Serious: Yes (Hospitalization)
  Sender: FDA-Public Use
  Company Number: EMADSS2002005733

PATIENT
  Sex: Female

DRUGS (1)
  1. NIZORAL [Suspect]
     Indication: MYCOSIS FUNGOIDES
     Dosage: ORAL
     Route: 048

REACTIONS (6)
  - AMNESTIC DISORDER [None]
  - ARRHYTHMIA [None]
  - BLOOD IMMUNOGLOBULIN M INCREASED [None]
  - CYTOMEGALOVIRUS INFECTION [None]
  - DEPRESSED MOOD [None]
  - HEPATITIS [None]
